FAERS Safety Report 7157826-3 (Version None)
Quarter: 2010Q4

REPORT INFORMATION
  Report Type: 
  Country: None (occurrence: None)
  Receive Date: 20101214
  Receipt Date: 20101206
  Transmission Date: 20110411
  Serious: Yes (Death)
  Sender: FDA-Public Use
  Company Number: IT-ABBOTT-10P-083-0689928-00

PATIENT
  Age: 52 Year
  Sex: Male

DRUGS (7)
  1. DEPAKIN INJECTION [Suspect]
     Indication: STATUS EPILEPTICUS
     Dosage: 1400 MG TOTAL
     Route: 042
     Dates: start: 20101122, end: 20101122
  2. GARDENALE [Concomitant]
     Indication: PRODUCT USED FOR UNKNOWN INDICATION
  3. FRISIUM [Concomitant]
     Indication: EPILEPSY
     Dosage: DAILY
     Route: 048
  4. DINTOINALE [Concomitant]
     Indication: EPILEPSY
     Dosage: 300 MG DAILY
     Route: 048
  5. HALOPERIDOL [Concomitant]
     Indication: PRODUCT USED FOR UNKNOWN INDICATION
     Dates: start: 20101122, end: 20101122
  6. CEFTRIAXONE [Concomitant]
     Indication: PRODUCT USED FOR UNKNOWN INDICATION
     Dates: start: 20101122, end: 20101122
  7. PHENOBARBITAL [Concomitant]
     Indication: EPILEPSY
     Dosage: DAILY
     Route: 048

REACTIONS (4)
  - COMA [None]
  - HYPERAMMONAEMIA [None]
  - RESPIRATORY ACIDOSIS [None]
  - TACHYPNOEA [None]
